FAERS Safety Report 10710543 (Version 2)
Quarter: 2015Q1

REPORT INFORMATION
  Report Type: Spontaneous
  Country: US (occurrence: None)
  Receive Date: 20150112
  Receipt Date: 20150130
  Transmission Date: 20150721
  Serious: Yes (Other)
  Sender: FDA-Public Use
  Company Number: 2015-US-000063

PATIENT
  Age: 70 Year
  Sex: Male
  Weight: 99.8 kg

DRUGS (1)
  1. XYREM [Suspect]
     Active Substance: SODIUM OXYBATE
     Indication: NARCOLEPSY
     Route: 048
     Dates: start: 201111

REACTIONS (3)
  - Precancerous cells present [None]
  - Weight decreased [None]
  - Large intestine polyp [None]

NARRATIVE: CASE EVENT DATE: 2014
